FAERS Safety Report 7925048-1 (Version None)
Quarter: 2011Q4

REPORT INFORMATION
  Report Type: 
  Country: None (occurrence: None)
  Receive Date: 20111118
  Receipt Date: 20110331
  Transmission Date: 20120403
  Serious: No
  Sender: FDA-Public Use
  Company Number: US-AMGEN-USASP2011017380

PATIENT
  Sex: Female

DRUGS (1)
  1. ENBREL [Suspect]
     Indication: RHEUMATOID ARTHRITIS
     Dosage: 50 MG, QWK
     Dates: start: 20090201

REACTIONS (5)
  - UPPER RESPIRATORY TRACT CONGESTION [None]
  - HYPERSENSITIVITY [None]
  - FATIGUE [None]
  - RHEUMATOID ARTHRITIS [None]
  - RHINORRHOEA [None]
